FAERS Safety Report 8695865 (Version 3)
Quarter: 2012Q4

REPORT INFORMATION
  Report Type: 
  Country: AU (occurrence: AU)
  Receive Date: 20120801
  Receipt Date: 20121008
  Transmission Date: 20130627
  Serious: Yes (Death, Hospitalization, Other)
  Sender: FDA-Public Use
  Company Number: AU-AMGEN-AUSSP2012046963

PATIENT
  Age: 64 Year
  Sex: Male

DRUGS (4)
  1. NEULASTA [Suspect]
     Indication: CHEMOTHERAPY
  2. CISPLATIN [Concomitant]
     Indication: TESTICULAR CANCER METASTATIC
  3. ETOPOSIDE [Concomitant]
     Indication: TESTICULAR CANCER METASTATIC
  4. IMMUNOSUPPRESSANTS [Concomitant]

REACTIONS (3)
  - Neutropenic sepsis [Fatal]
  - Febrile neutropenia [Unknown]
  - Necrotising colitis [Unknown]
